FAERS Safety Report 8126084-5 (Version None)
Quarter: 2012Q1

REPORT INFORMATION
  Report Type: 
  Country: None (occurrence: None)
  Receive Date: 20120209
  Receipt Date: 20120202
  Transmission Date: 20120608
  Serious: Yes (Hospitalization)
  Sender: FDA-Public Use
  Company Number: PHHY2012AR009349

PATIENT
  Sex: Female

DRUGS (1)
  1. EXFORGE [Suspect]
     Indication: HYPERTENSION
     Dosage: (160/5 MG), DAILY
     Dates: start: 20110901, end: 20111101

REACTIONS (2)
  - NOSOCOMIAL INFECTION [None]
  - HYPOTENSION [None]
